FAERS Safety Report 7693372-6 (Version None)
Quarter: 2011Q3

REPORT INFORMATION
  Report Type: 
  Country: None (occurrence: None)
  Receive Date: 20110819
  Receipt Date: 20110805
  Transmission Date: 20111222
  Serious: Yes (Hospitalization, Other)
  Sender: FDA-Public Use
  Company Number: RO-ELI_LILLY_AND_COMPANY-RO201108002813

PATIENT
  Age: 35 Year
  Sex: Female

DRUGS (3)
  1. GEMZAR [Suspect]
     Dosage: UNK, UNKNOWN
     Route: 065
  2. CISPLATIN [Concomitant]
     Dosage: UNK, UNKNOWN
     Route: 065
  3. MABTHERA [Concomitant]
     Dosage: UNK, UNKNOWN
     Route: 065

REACTIONS (7)
  - NEOPLASM PROGRESSION [None]
  - CHOLESTASIS [None]
  - ANAEMIA [None]
  - HEPATOMEGALY [None]
  - RENAL FAILURE [None]
  - CYTOLYTIC HEPATITIS [None]
  - INFLAMMATION [None]
